FAERS Safety Report 7314881-5 (Version None)
Quarter: 2011Q1

REPORT INFORMATION
  Report Type: 
  Country: None (occurrence: None)
  Receive Date: 20110225
  Receipt Date: 20100115
  Transmission Date: 20110831
  Serious: Yes (Other)
  Sender: FDA-Public Use
  Company Number: US-MYLANLABS-2010S1000822

PATIENT
  Sex: Female

DRUGS (16)
  1. ACCUTANE [Suspect]
     Indication: ACNE
     Dates: start: 19870101, end: 19870601
  2. AMNESTEEM [Suspect]
     Dates: start: 20070301, end: 20070301
  3. ACCUTANE [Suspect]
     Dates: start: 19930501, end: 19931101
  4. ACCUTANE [Suspect]
     Dates: start: 20010101, end: 20010601
  5. ACCUTANE [Suspect]
     Dates: start: 20010901, end: 20020301
  6. ACCUTANE [Suspect]
     Dates: start: 19990201, end: 19990801
  7. ACCUTANE [Suspect]
     Dates: start: 20000401, end: 20001001
  8. ACCUTANE [Suspect]
     Dates: start: 19880301, end: 19880801
  9. ACCUTANE [Suspect]
     Dates: start: 19881001, end: 19890301
  10. SOTRET [Suspect]
     Indication: ACNE
     Dates: start: 20070401, end: 20070801
  11. ACCUTANE [Suspect]
     Dates: start: 19870801, end: 19880101
  12. ACCUTANE [Suspect]
     Dates: start: 19971201, end: 19980801
  13. ACCUTANE [Suspect]
     Dates: start: 19900301, end: 19900801
  14. ACCUTANE [Suspect]
     Dates: start: 19970501, end: 19971101
  15. ACCUTANE [Suspect]
     Dates: start: 20021001, end: 20020201
  16. AMNESTEEM [Suspect]
     Indication: ACNE
     Dates: start: 20041201, end: 20050701

REACTIONS (1)
  - INFLAMMATORY BOWEL DISEASE [None]
